FAERS Safety Report 6379838-X (Version None)
Quarter: 2009Q3

REPORT INFORMATION
  Report Type: 
  Country: None (occurrence: None)
  Receive Date: 20090923
  Receipt Date: 20090914
  Transmission Date: 20100115
  Serious: Yes (Hospitalization)
  Sender: FDA-Public Use
  Company Number: GXKR2009ZA10243

PATIENT
  Age: 9 Year
  Sex: Female
  Weight: 26 kg

DRUGS (9)
  1. FLUOXETINE [Suspect]
     Indication: DEPRESSION
     Dosage: 5 MG
  2. ISONIAZID [Concomitant]
     Indication: PULMONARY TUBERCULOSIS
  3. RITONAVIR [Suspect]
     Indication: HIV INFECTION
  4. RIFAMPICIN [Concomitant]
  5. STAVUDINE [Concomitant]
  6. LAMIVUDINE [Concomitant]
  7. LOPINAVIR            (LOPINAVIR) [Concomitant]
  8. PYRAZINAMIDE [Concomitant]
  9. ETHIONAMIDE        (ETHIONAMIDE) [Concomitant]

REACTIONS (5)
  - ALTERED STATE OF CONSCIOUSNESS [None]
  - DEPRESSION [None]
  - DRUG INTERACTION [None]
  - MENTAL DISORDER [None]
  - SEROTONIN SYNDROME [None]
